FAERS Safety Report 9779575 (Version 1)
Quarter: 2013Q4

REPORT INFORMATION
  Report Type: Report from Study
  Country: CA (occurrence: CA)
  Receive Date: 20131223
  Receipt Date: 20131223
  Transmission Date: 20140711
  Serious: Yes (Other)
  Sender: FDA-Public Use
  Company Number: CA-US-EMD SERONO, INC.-7258380

PATIENT
  Age: 7 Year
  Sex: Female

DRUGS (3)
  1. SAIZEN [Suspect]
     Indication: TURNER^S SYNDROME
     Route: 058
     Dates: start: 20130115
  2. DAPSONE [Suspect]
     Indication: COELIAC DISEASE
  3. DAPSONE [Suspect]

REACTIONS (1)
  - Hypoxia [Not Recovered/Not Resolved]
